FAERS Safety Report 22064217 (Version 1)
Quarter: 2023Q1

REPORT INFORMATION
  Report Type: Spontaneous
  Country: FR (occurrence: FR)
  Receive Date: 20230306
  Receipt Date: 20230306
  Transmission Date: 20230417
  Serious: Yes (Hospitalization, Other)
  Sender: FDA-Public Use
  Company Number: FR-ORGANON-O2302FRA002382

PATIENT
  Sex: Female

DRUGS (1)
  1. CARBIDOPA\LEVODOPA [Suspect]
     Active Substance: CARBIDOPA\LEVODOPA
     Indication: Parkinson^s disease
     Dosage: 200 MG/50 MG AT THE DOSAGE OF 1 TABLET AT 8AM, 10AM, 1PM, 3PM, 6PM, 8PM AND 10PM
     Route: 048

REACTIONS (1)
  - Humerus fracture [Unknown]

NARRATIVE: CASE EVENT DATE: 20230101
